FAERS Safety Report 24531383 (Version 1)
Quarter: 2024Q4

REPORT INFORMATION
  Report Type: Report from Study
  Country: US (occurrence: US)
  Receive Date: 20241022
  Receipt Date: 20241022
  Transmission Date: 20250114
  Serious: No
  Sender: ROCHE
  Company Number: US-ROCHE-3503178

PATIENT
  Age: 5 Year
  Sex: Male

DRUGS (12)
  1. PULMOZYME [Suspect]
     Active Substance: DORNASE ALFA
     Indication: Pneumonia
     Dosage: INHALE 2.5 MG INTO THE LUNGS DAILY.? STRENGTH: 1MG/ML
     Route: 055
  2. TYLENOL [Concomitant]
     Active Substance: ACETAMINOPHEN
     Dosage: STRENGTH: 160MG/5ML
  3. DUONEB [Concomitant]
     Active Substance: ALBUTEROL SULFATE\IPRATROPIUM BROMIDE
     Dosage: STRENGTH: 0.5-2.5MG/3ML
  4. ZITHROMAX [Concomitant]
     Active Substance: AZITHROMYCIN DIHYDRATE
     Dosage: STRENGTH:200MG/ML
     Route: 048
  5. ZITHROMAX [Concomitant]
     Active Substance: AZITHROMYCIN DIHYDRATE
     Dosage: STRENGTH: 200MG/5ML
     Route: 048
  6. BROMPHENIRAMINE\PSEUDOEPHEDRINE [Concomitant]
     Active Substance: BROMPHENIRAMINE\PSEUDOEPHEDRINE
  7. BUDESONIDE [Concomitant]
     Active Substance: BUDESONIDE
     Dosage: STRENGTH: 1MG/2ML
     Route: 045
  8. DIAZEPAM [Concomitant]
     Active Substance: DIAZEPAM
  9. FLONASE [Concomitant]
     Active Substance: FLUTICASONE PROPIONATE
     Route: 045
  10. MOTRIN [Concomitant]
     Active Substance: IBUPROFEN
     Dosage: STRENGTH:100MG/ML
  11. GLYCOLAX [Concomitant]
     Active Substance: POLYETHYLENE GLYCOL 3350
     Route: 048
  12. PREDNISOLONE [Concomitant]
     Active Substance: PREDNISOLONE
     Route: 048

REACTIONS (2)
  - Off label use [Unknown]
  - No adverse event [Unknown]
